FAERS Safety Report 19179552 (Version 1)
Quarter: 2021Q2

REPORT INFORMATION
  Report Type: Spontaneous
  Country: US (occurrence: US)
  Receive Date: 20210423
  Receipt Date: 20210423
  Transmission Date: 20210717
  Serious: Yes (Other)
  Sender: FDA-Public Use
  Company Number: None

PATIENT
  Age: 36 Year
  Sex: Female
  Weight: 57.6 kg

DRUGS (1)
  1. OCRELIZUMAB. [Suspect]
     Active Substance: OCRELIZUMAB
     Indication: MULTIPLE SCLEROSIS
     Dosage: ?          OTHER FREQUENCY:Q6 MOS;?
     Route: 041
     Dates: start: 20180323, end: 20210423

REACTIONS (5)
  - Throat irritation [None]
  - Rhinorrhoea [None]
  - Lethargy [None]
  - Unresponsive to stimuli [None]
  - Hypotension [None]

NARRATIVE: CASE EVENT DATE: 20210423
